FAERS Safety Report 4877740-3 (Version None)
Quarter: 2005Q4

REPORT INFORMATION
  Report Type: 
  Country: None (occurrence: None)
  Receive Date: 20051106
  Receipt Date: 20050901
  Transmission Date: 20060501
  Serious: No
  Sender: FDA-Public Use
  Company Number: USA0509107094

PATIENT
  Age: 58 Year
  Sex: Male

DRUGS (4)
  1. CYMBALTA [Suspect]
     Indication: PAIN IN EXTREMITY
     Dosage: 30 MG
     Dates: start: 20050830, end: 20050830
  2. LIPITOR [Concomitant]
  3. HYDROCHLOROTHIAZIDE [Concomitant]
  4. NORVASC [Concomitant]

REACTIONS (1)
  - MUSCLE TIGHTNESS [None]
